FAERS Safety Report 5662087-8 (Version None)
Quarter: 2008Q1

REPORT INFORMATION
  Report Type: 
  Country: None (occurrence: None)
  Receive Date: 20080312
  Receipt Date: 20080307
  Transmission Date: 20080703
  Serious: Yes (Other)
  Sender: FDA-Public Use
  Company Number: US-ALLERGAN-0802757US

PATIENT
  Sex: Female

DRUGS (2)
  1. BOTOX [Suspect]
     Indication: TORTICOLLIS
     Dosage: 170 UNITS, SINGLE
     Route: 030
     Dates: start: 20080221, end: 20080221
  2. BOTOX [Suspect]
     Indication: MIGRAINE

REACTIONS (6)
  - CHOKING [None]
  - DRY MOUTH [None]
  - DYSPHAGIA [None]
  - INFLUENZA LIKE ILLNESS [None]
  - INJECTION SITE PAIN [None]
  - WEIGHT DECREASED [None]
